FAERS Safety Report 24732755 (Version 7)
Quarter: 2025Q4

REPORT INFORMATION
  Report Type: Report from Study
  Country: US (occurrence: US)
  Receive Date: 20241213
  Receipt Date: 20251224
  Transmission Date: 20260118
  Serious: Yes (Hospitalization, Other)
  Sender: PFIZER
  Company Number: US-PFIZER INC-PV202300121956

PATIENT
  Age: 92 Year
  Sex: Male

DRUGS (4)
  1. BOSULIF [Suspect]
     Active Substance: BOSUTINIB MONOHYDRATE
     Indication: Philadelphia positive chronic myeloid leukaemia
     Dosage: TAKE 3 TABLETS EVERY EVENING
     Route: 048
  2. BOSULIF [Suspect]
     Active Substance: BOSUTINIB MONOHYDRATE
     Dosage: TAKE THREE 100 MG TABLETS DAILY
     Route: 048
  3. BOSULIF [Suspect]
     Active Substance: BOSUTINIB MONOHYDRATE
     Dosage: TAKE 3 TABLETS EVERY MORNING. TAKE 3 TABLETS EVERY EVENING
     Route: 048
  4. NEURONTIN [Concomitant]
     Active Substance: GABAPENTIN
     Dosage: TAKE 1 (ONE) CAPSULE (400 MG TOTAL) BY MOUTH 3 (THREE) TIMES DAILY.
     Route: 048

REACTIONS (2)
  - Pneumonia [Unknown]
  - Off label use [Unknown]
